FAERS Safety Report 19274465 (Version 1)
Quarter: 2021Q2

REPORT INFORMATION
  Report Type: Spontaneous
  Country: US (occurrence: US)
  Receive Date: 20210519
  Receipt Date: 20210519
  Transmission Date: 20210717
  Serious: No
  Sender: FDA-Public Use
  Company Number: US-ELI_LILLY_AND_COMPANY-US202105003688

PATIENT
  Age: 61 Year
  Sex: Female

DRUGS (1)
  1. BAMLANIVIMAB 700MG [Suspect]
     Active Substance: BAMLANIVIMAB
     Indication: COVID-19
     Dosage: UNK, SINGLE
     Route: 042
     Dates: start: 20201207, end: 20201207

REACTIONS (3)
  - Nausea [Unknown]
  - Hyperhidrosis [Unknown]
  - Dizziness [Unknown]

NARRATIVE: CASE EVENT DATE: 20201207
